FAERS Safety Report 20082850 (Version 1)
Quarter: 2021Q4

REPORT INFORMATION
  Report Type: Spontaneous
  Country: JP (occurrence: JP)
  Receive Date: 20211117
  Receipt Date: 20211117
  Transmission Date: 20220304
  Serious: Yes (Other)
  Sender: FDA-Public Use
  Company Number: JP-OTSUKA-JP-2011-11261

PATIENT
  Age: 3 Decade

DRUGS (1)
  1. ABILIFY [Suspect]
     Active Substance: ARIPIPRAZOLE
     Indication: Product used for unknown indication
     Dosage: 6 MG, QD
     Route: 048

REACTIONS (5)
  - Autism spectrum disorder [Unknown]
  - Hepatic function abnormal [Unknown]
  - Dizziness postural [Not Recovered/Not Resolved]
  - Tremor [Unknown]
  - Dizziness [Not Recovered/Not Resolved]
